FAERS Safety Report 15882410 (Version 2)
Quarter: 2019Q1

REPORT INFORMATION
  Report Type: Report from Study
  Country: GB (occurrence: GB)
  Receive Date: 20190129
  Receipt Date: 20190203
  Transmission Date: 20190417
  Serious: Yes (Life-Threatening)
  Sender: FDA-Public Use
  Company Number: GB-CELLTRION INC.-2019GB018053

PATIENT

DRUGS (6)
  1. TRUXIMA [Suspect]
     Active Substance: RITUXIMAB-ABBS
     Dosage: 800 MG, 3 WEEKLY AS PART OF 6 CYCLE CHEMOTHERAPY
     Route: 042
     Dates: start: 20180102, end: 20180102
  2. TRUXIMA [Suspect]
     Active Substance: RITUXIMAB-ABBS
     Dosage: 800 MG, 3 WEEKLY AS PART OF 6 CYCLE CHEMOTHERAPY
     Route: 042
     Dates: start: 20180123, end: 20180123
  3. TRUXIMA [Suspect]
     Active Substance: RITUXIMAB-ABBS
     Indication: DIFFUSE LARGE B-CELL LYMPHOMA
     Dosage: 800 MG, 3 WEEKLY AS PART OF 6 CYCLE CHEMOTHERAPY
     Route: 042
     Dates: start: 20171121, end: 20171121
  4. TRUXIMA [Suspect]
     Active Substance: RITUXIMAB-ABBS
     Dosage: 800 MG, 3 WEEKLY AS PART OF 6 CYCLE CHEMOTHERAPY
     Route: 042
     Dates: start: 20180213, end: 20180213
  5. TRUXIMA [Suspect]
     Active Substance: RITUXIMAB-ABBS
     Dosage: 800 MG, 3 WEEKLY AS PART OF 6 CYCLE CHEMOTHERAPY
     Route: 042
     Dates: start: 20180306, end: 20180306
  6. TRUXIMA [Suspect]
     Active Substance: RITUXIMAB-ABBS
     Dosage: 800 MG, 3 WEEKLY AS PART OF 6 CYCLE CHEMOTHERAPY
     Route: 042
     Dates: start: 20171212, end: 20171212

REACTIONS (4)
  - Gastric polyps [Unknown]
  - Chronic gastritis [Unknown]
  - Hiatus hernia [Unknown]
  - Helicobacter gastritis [Unknown]

NARRATIVE: CASE EVENT DATE: 20180503
